FAERS Safety Report 5749514-2 (Version None)
Quarter: 2008Q2

REPORT INFORMATION
  Report Type: 
  Country: None (occurrence: None)
  Receive Date: 20080527
  Receipt Date: 20080515
  Transmission Date: 20081010
  Serious: Yes (Other)
  Sender: FDA-Public Use
  Company Number: B0521534A

PATIENT
  Age: 62 Year
  Sex: Female
  Weight: 45 kg

DRUGS (13)
  1. ARIXTRA [Suspect]
     Dosage: 2.5MG PER DAY
     Route: 058
     Dates: start: 20060301, end: 20060307
  2. KETOPROFEN [Concomitant]
     Dosage: 100MG VARIABLE DOSE
     Route: 065
     Dates: start: 20060301, end: 20060303
  3. SEROPRAM [Concomitant]
     Dosage: 1TAB PER DAY
     Route: 048
     Dates: end: 20060312
  4. LOVENOX [Concomitant]
     Dosage: 4000IU PER DAY
     Route: 065
     Dates: start: 20060308
  5. ZOLPIDEM TARTRATE [Concomitant]
     Route: 065
  6. LYSANXIA [Concomitant]
     Route: 065
  7. CREON [Concomitant]
     Route: 065
  8. MOPRAL [Concomitant]
     Route: 065
  9. ULTRACET [Concomitant]
     Route: 065
  10. FOSAMAX [Concomitant]
     Route: 065
  11. DENSICAL [Concomitant]
     Route: 065
  12. MORPHINE [Concomitant]
     Route: 065
  13. ANALGESIC [Concomitant]
     Route: 065

REACTIONS (2)
  - HAEMOGLOBIN DECREASED [None]
  - WOUND HAEMORRHAGE [None]
